FAERS Safety Report 6684635-1 (Version None)
Quarter: 2010Q2

REPORT INFORMATION
  Report Type: 
  Country: None (occurrence: None)
  Receive Date: 20100416
  Receipt Date: 20100405
  Transmission Date: 20101027
  Serious: No
  Sender: FDA-Public Use
  Company Number: DE-ROCHE-697350

PATIENT
  Sex: Female

DRUGS (1)
  1. ISOTRETINOIN [Suspect]
     Indication: ACNE
     Dosage: REPORTED AS SYSTEMIC ISOTRETINOIN AT A MEDIAN DAILY DOSE OF 20 MG
     Route: 065

REACTIONS (1)
  - ABORTION INDUCED [None]
